FAERS Safety Report 4872195-7 (Version None)
Quarter: 2006Q1

REPORT INFORMATION
  Report Type: 
  Country: None (occurrence: None)
  Receive Date: 20060104
  Receipt Date: 20050621
  Transmission Date: 20060701
  Serious: Yes (Death, Other)
  Sender: FDA-Public Use
  Company Number: JP-BRISTOL-MYERS SQUIBB COMPANY-13011432

PATIENT
  Age: 71 Year
  Sex: Male

DRUGS (10)
  1. TAXOL [Suspect]
     Indication: LUNG NEOPLASM MALIGNANT
     Route: 042
     Dates: start: 20050516, end: 20050516
  2. PARAPLATIN [Suspect]
     Indication: LUNG NEOPLASM MALIGNANT
     Route: 042
     Dates: start: 20050516, end: 20050516
  3. DEXAMETHASONE SODIUM PHOSPHATE [Concomitant]
     Route: 042
     Dates: start: 20050502, end: 20050516
  4. RANITIDINE HCL [Concomitant]
     Route: 042
     Dates: start: 20050502, end: 20050516
  5. DIPHENHYDRAMINE HCL [Concomitant]
     Route: 048
     Dates: start: 20050502, end: 20050516
  6. PREDNISOLONE [Concomitant]
     Route: 048
     Dates: start: 20050509, end: 20050517
  7. RABEPRAZOLE SODIUM [Concomitant]
     Route: 048
     Dates: start: 20050420, end: 20050517
  8. NAPROXEN [Concomitant]
     Route: 048
     Dates: start: 20050420, end: 20050517
  9. ZOLPIDEM TARTRATE [Concomitant]
     Route: 048
     Dates: start: 20050420, end: 20050517
  10. ALUMINUM HYDROXIDE GEL [Concomitant]
     Route: 048
     Dates: start: 20050401, end: 20050517

REACTIONS (7)
  - CARDIAC ARREST [None]
  - DRUG ERUPTION [None]
  - GASTRIC PERFORATION [None]
  - INTESTINAL PERFORATION [None]
  - MALLORY-WEISS SYNDROME [None]
  - RESPIRATORY ARREST [None]
  - SHOCK HAEMORRHAGIC [None]
